FAERS Safety Report 21964845 (Version 1)
Quarter: 2023Q1

REPORT INFORMATION
  Report Type: Report from Study
  Country: JP (occurrence: JP)
  Receive Date: 20230207
  Receipt Date: 20230207
  Transmission Date: 20230418
  Serious: Yes (Other)
  Sender: FDA-Public Use
  Company Number: JP-002147023-NVSJ2022JP000797

PATIENT
  Age: 84 Year
  Sex: Male

DRUGS (6)
  1. TABRECTA [Suspect]
     Active Substance: CAPMATINIB
     Indication: Non-small cell lung cancer
     Dosage: 800 MG
     Route: 048
     Dates: start: 20211221, end: 20211223
  2. TABRECTA [Suspect]
     Active Substance: CAPMATINIB
     Dosage: 800 MG
     Route: 048
     Dates: start: 20211228, end: 20220104
  3. TABRECTA [Suspect]
     Active Substance: CAPMATINIB
     Dosage: 600 MG
     Route: 048
     Dates: start: 20220115, end: 20220506
  4. TABRECTA [Suspect]
     Active Substance: CAPMATINIB
     Dosage: 400 MG
     Route: 048
     Dates: start: 20220527
  5. AZOSEMIDE [Suspect]
     Active Substance: AZOSEMIDE
     Indication: Oedema peripheral
     Dosage: UNK
     Route: 065
     Dates: start: 20220513, end: 20220520
  6. IOPROMIDE [Suspect]
     Active Substance: IOPROMIDE
     Indication: Product used for unknown indication
     Dosage: UNK
     Route: 065
     Dates: start: 20211222

REACTIONS (7)
  - Hyperkalaemia [Recovering/Resolving]
  - Blood creatinine increased [Not Recovered/Not Resolved]
  - Urticaria chronic [Recovering/Resolving]
  - Oedema peripheral [Recovering/Resolving]
  - Aspartate aminotransferase increased [Recovered/Resolved]
  - Alanine aminotransferase increased [Recovered/Resolved]
  - Proteinuria [Recovering/Resolving]

NARRATIVE: CASE EVENT DATE: 20211223
